FAERS Safety Report 8762722 (Version 3)
Quarter: 2012Q4

REPORT INFORMATION
  Report Type: Report from Study
  Country: JP (occurrence: JP)
  Receive Date: 20120831
  Receipt Date: 20121105
  Transmission Date: 20130627
  Serious: Yes (Other)
  Sender: FDA-Public Use
  Company Number: JP-ROCHE-1110607

PATIENT
  Age: 52 Year
  Sex: Male
  Weight: 52 kg

DRUGS (6)
  1. PEG-INTERFERON ALFA 2A [Suspect]
     Indication: CHRONIC HEPATITIS C
     Route: 058
     Dates: start: 20120613
  2. RIBAVIRIN [Suspect]
     Indication: CHRONIC HEPATITIS C
     Route: 048
     Dates: start: 20120613
  3. BLINDED BI 201335 (HCV PROTEASE INHIBITOR) [Suspect]
     Indication: CHRONIC HEPATITIS C
     Route: 048
     Dates: start: 20120613
  4. LOXOPROFEN [Concomitant]
     Indication: PYREXIA
     Route: 048
     Dates: start: 20120614
  5. SUNSCREEN [Concomitant]
  6. GLUTAMINE [Concomitant]
     Indication: PROPHYLAXIS
     Route: 048
     Dates: start: 20120623

REACTIONS (4)
  - Retinal haemorrhage [Not Recovered/Not Resolved]
  - Vitreous haemorrhage [Not Recovered/Not Resolved]
  - Rash [Recovered/Resolved]
  - Photosensitivity reaction [Recovered/Resolved]
